FAERS Safety Report 20175084 (Version 1)
Quarter: 2021Q4

REPORT INFORMATION
  Report Type: Spontaneous
  Country: US (occurrence: None)
  Receive Date: 20211209
  Receipt Date: 20211209
  Transmission Date: 20220303
  Serious: Yes (Death)
  Sender: FDA-Public Use
  Company Number: None

PATIENT
  Age: 56 Year
  Sex: Male
  Weight: 112.5 kg

DRUGS (1)
  1. REMDESIVIR [Suspect]
     Active Substance: REMDESIVIR
     Indication: COVID-19 treatment
     Route: 042
     Dates: start: 20211018, end: 20211025

REACTIONS (5)
  - Condition aggravated [None]
  - Acute kidney injury [None]
  - Dialysis [None]
  - Suspected product contamination [None]
  - Internal injury [None]

NARRATIVE: CASE EVENT DATE: 20211018
